FAERS Safety Report 9508369 (Version 3)
Quarter: 2013Q4

REPORT INFORMATION
  Report Type: Spontaneous
  Country: AU (occurrence: AU)
  Receive Date: 20130909
  Receipt Date: 20131016
  Transmission Date: 20140711
  Serious: Yes (Life-Threatening, Other)
  Sender: FDA-Public Use
  Company Number: AU-PFIZER INC-2013257435

PATIENT
  Age: 45 Year
  Sex: Male

DRUGS (14)
  1. PREGABALIN [Suspect]
     Indication: NEURALGIA
     Dosage: 25 MG, DAILY
     Route: 048
  2. PREGABALIN [Suspect]
     Dosage: 25 MG, 2X/DAY
     Route: 048
     Dates: start: 20130509
  3. PREGABALIN [Suspect]
     Dosage: 50 MG, 2X/DAY
     Route: 048
  4. PREGABALIN [Suspect]
     Dosage: 75 MG, 2X/DAY
     Route: 048
  5. MIRTAZAPINE [Concomitant]
     Indication: DEPRESSION
     Dosage: 15 MG, 2X/DAY
  6. AMITRIPTYLINE [Concomitant]
     Indication: DEPRESSION
     Dosage: 50 MG, 1X/DAY
  7. AMITRIPTYLINE [Concomitant]
     Indication: PAIN
  8. MS CONTIN [Concomitant]
     Indication: PAIN
     Dosage: 20 MG, 2X/DAY
     Route: 048
     Dates: start: 201302
  9. PANADEINE FORTE [Concomitant]
     Indication: PAIN
     Dosage: 2 DF, UNK, THREE TO FOUR TIMES/WHEN NEEDED
     Route: 048
  10. MERSYNDOL [Concomitant]
     Indication: PAIN
     Dosage: 2 DF, AS NEEDED
  11. DICLOFENAC [Concomitant]
     Dosage: UNK
  12. PARIET [Concomitant]
     Indication: GASTROOESOPHAGEAL REFLUX DISEASE
     Dosage: 1 DF, UNK
     Route: 048
  13. MORPHINE HYDROCHLORIDE [Concomitant]
     Dosage: UNK
  14. CANNABIS [Concomitant]
     Dosage: UNK

REACTIONS (4)
  - Suicidal ideation [Recovered/Resolved]
  - Depression [Recovered/Resolved]
  - Panic attack [Recovered/Resolved]
  - Depressed mood [Recovered/Resolved]
